FAERS Safety Report 8742531 (Version 2)
Quarter: 2013Q1

REPORT INFORMATION
  Report Type: Spontaneous
  Country: US (occurrence: US)
  Receive Date: 20120824
  Receipt Date: 20130107
  Transmission Date: 20140127
  Serious: No
  Sender: FDA-Public Use
  Company Number: US-ASTRAZENECA-2012SE21269

PATIENT
  Age: 62 Year
  Sex: Male

DRUGS (12)
  1. SYMBICORT PMDI [Suspect]
     Dosage: 160/4.5 MCG 1 PUFFS,TWO TIMES A DAY
     Route: 055
  2. LISINOPRIL [Suspect]
     Route: 048
  3. PREDNISONE [Concomitant]
  4. ZITHROMAX Z-PACK [Concomitant]
     Dosage: TAKE 2 TABLETS BY MOUTH ON DAY 1 AND THEN TAKE 1 TABLET ONCE DAILY FOUR MORE DAYS
     Route: 048
  5. VIAGRA [Concomitant]
     Dosage: TAKE 1 TABLET BY MOUTH 30 TO 60 MINUTES PRIOR TO SEXUAL ACTIVITY
     Route: 048
  6. ALBUTEROL SULFATE HFA AERS [Concomitant]
     Dosage: 2 PUFFS Q 4 HRS
  7. ALBUTEROL SULFATE HFA AERS [Concomitant]
     Dosage: 0.083 PERCENTAGE NEBULIZER,USE WITH NEBULIZER PRN
  8. HYDROCHLOROTHIAZIDE [Concomitant]
  9. CODEINE SULFATE [Concomitant]
     Indication: BACK PAIN
     Dosage: AS NEEDED
  10. SKELAXIN [Concomitant]
     Dosage: 800 MG TAB 1 PILL EVERY 80HOURS AS NEEDED
  11. GABAPENTIN [Concomitant]
  12. GABAPENTIN [Concomitant]

REACTIONS (3)
  - Asthma [Unknown]
  - Memory impairment [Unknown]
  - Cough [Unknown]
